FAERS Safety Report 7891482-1 (Version None)
Quarter: 2011Q4

REPORT INFORMATION
  Report Type: 
  Country: None (occurrence: None)
  Receive Date: 20111103
  Receipt Date: 20110803
  Transmission Date: 20120403
  Serious: Yes (Other)
  Sender: FDA-Public Use
  Company Number: US-AMGEN-USASP2011039563

PATIENT
  Sex: Female

DRUGS (1)
  1. ENBREL [Suspect]
     Indication: PSORIASIS
     Dosage: UNK
     Dates: end: 20110201

REACTIONS (3)
  - LYMPHADENOPATHY [None]
  - ATYPICAL MYCOBACTERIAL INFECTION [None]
  - PSORIASIS [None]
